FAERS Safety Report 8614841-8 (Version None)
Quarter: 2012Q3

REPORT INFORMATION
  Report Type: 
  Country: None (occurrence: None)
  Receive Date: 20120815
  Receipt Date: 20120815
  Transmission Date: 20120928
  Serious: Yes (Other)
  Sender: FDA-Public Use
  Company Number: None

PATIENT
  Age: 90 Year
  Sex: Female
  Weight: 57 kg

DRUGS (1)
  1. DEXTERRAN [Suspect]
     Indication: ANAEMIA
     Dosage: 25 MG (0.5 ML), QD, IV
     Route: 042
     Dates: start: 20120815

REACTIONS (1)
  - MYALGIA [None]
